FAERS Safety Report 7132806-2 (Version None)
Quarter: 2010Q4

REPORT INFORMATION
  Report Type: 
  Country: None (occurrence: None)
  Receive Date: 20101202
  Receipt Date: 20101124
  Transmission Date: 20110411
  Serious: No
  Sender: FDA-Public Use
  Company Number: US-PFIZER INC-2010126178

PATIENT
  Sex: Female

DRUGS (4)
  1. XANAX [Suspect]
     Indication: TINNITUS
     Dosage: 0.5 MG, 3X/DAY
     Dates: start: 20100501, end: 20100101
  2. VIAGRA [Suspect]
     Indication: ERECTILE DYSFUNCTION
     Dosage: UNK
     Dates: start: 20100101
  3. VIAGRA [Suspect]
     Indication: LOSS OF LIBIDO
  4. XYREM [Suspect]
     Dosage: UNK

REACTIONS (5)
  - ALOPECIA [None]
  - DEPRESSION [None]
  - DRUG INEFFECTIVE [None]
  - LIBIDO DECREASED [None]
  - VERTIGO [None]
